FAERS Safety Report 18642920 (Version 2)
Quarter: 2021Q1

REPORT INFORMATION
  Report Type: Report from Study
  Country: JP (occurrence: JP)
  Receive Date: 20201221
  Receipt Date: 20210202
  Transmission Date: 20210419
  Serious: Yes (Hospitalization)
  Sender: FDA-Public Use
  Company Number: JP-EISAI MEDICAL RESEARCH-EC-2018-047591

PATIENT
  Age: 73 Year
  Sex: Female
  Weight: 69 kg

DRUGS (11)
  1. LENVIMA [Suspect]
     Active Substance: LENVATINIB
     Route: 048
     Dates: start: 20190122, end: 20190123
  2. AMINOLEBAN [Concomitant]
     Active Substance: AMINO ACIDS, SOURCE UNSPECIFIED
     Route: 065
     Dates: start: 20181031, end: 20181101
  3. AMINOLEBAN EN [Concomitant]
     Active Substance: UNSPECIFIED INGREDIENT
     Indication: HEPATIC ENCEPHALOPATHY PROPHYLAXIS
     Route: 048
  4. LACTULOSE. [Concomitant]
     Active Substance: LACTULOSE
     Indication: HEPATIC ENCEPHALOPATHY
     Route: 065
  5. LENVIMA [Suspect]
     Active Substance: LENVATINIB
     Route: 048
     Dates: start: 20181123, end: 20181210
  6. AMINOLEBAN [Concomitant]
     Active Substance: AMINO ACIDS, SOURCE UNSPECIFIED
     Indication: HEPATIC ENCEPHALOPATHY PROPHYLAXIS
     Route: 065
  7. AMINOLEBAN [Concomitant]
     Active Substance: AMINO ACIDS, SOURCE UNSPECIFIED
     Route: 065
     Dates: start: 20181110, end: 20181112
  8. AMINOLEBAN [Concomitant]
     Active Substance: AMINO ACIDS, SOURCE UNSPECIFIED
     Route: 065
     Dates: start: 20190123, end: 20190127
  9. LENVIMA [Suspect]
     Active Substance: LENVATINIB
     Route: 048
     Dates: start: 20181106, end: 20181109
  10. AMINOLEBAN [Concomitant]
     Active Substance: AMINO ACIDS, SOURCE UNSPECIFIED
     Route: 065
     Dates: start: 20181210, end: 20181213
  11. LENVIMA [Suspect]
     Active Substance: LENVATINIB
     Indication: HEPATOCELLULAR CARCINOMA
     Route: 048
     Dates: start: 20181025, end: 20181105

REACTIONS (2)
  - Decreased appetite [Not Recovered/Not Resolved]
  - Generalised oedema [Not Recovered/Not Resolved]

NARRATIVE: CASE EVENT DATE: 20201208
